FAERS Safety Report 17417870 (Version 16)
Quarter: 2023Q2

REPORT INFORMATION
  Report Type: Report from Study
  Country: JP (occurrence: JP)
  Receive Date: 20200213
  Receipt Date: 20230420
  Transmission Date: 20230722
  Serious: Yes (Death, Hospitalization)
  Sender: FDA-Public Use
  Company Number: JP-ABBVIE-20K-087-3268267-00

PATIENT
  Age: 45 Year
  Sex: Female
  Weight: 56 kg

DRUGS (22)
  1. CARBIDOPA\LEVODOPA [Suspect]
     Active Substance: CARBIDOPA\LEVODOPA
     Indication: Parkinson^s disease
     Dosage: MD: 13 ML, CD: 2.6 ML/HR ? 16 HRS, ED: 1.2 ML/UNIT ? 0
     Route: 050
     Dates: start: 20201216, end: 20221209
  2. CARBIDOPA\LEVODOPA [Suspect]
     Active Substance: CARBIDOPA\LEVODOPA
     Dosage: MD: 10 ML?CD: 1.0 ML/HR ? 16 HRS?ED: 0.5 ML/UNIT ? 0
     Route: 050
     Dates: start: 20190628, end: 20190630
  3. CARBIDOPA\LEVODOPA [Suspect]
     Active Substance: CARBIDOPA\LEVODOPA
     Dosage: MD: 11 ML?CD: 1.2 ML/HR ? 16 HRS?ED: 0.5 ML/UNIT ? 0
     Route: 050
     Dates: start: 20190701, end: 20190701
  4. CARBIDOPA\LEVODOPA [Suspect]
     Active Substance: CARBIDOPA\LEVODOPA
     Dosage: MD: 14 ML?CD: 1.4 ML/HR ? 16 HRS?ED: 0.5 ML/UNIT ? 0
     Route: 050
     Dates: start: 20190702, end: 20190716
  5. CARBIDOPA\LEVODOPA [Suspect]
     Active Substance: CARBIDOPA\LEVODOPA
     Dosage: MD: 18 ML?CD: 2.1 ML/HR ? 16 HRS?ED: 0.5 ML/UNIT ? 0
     Route: 050
     Dates: start: 20190717, end: 20190723
  6. CARBIDOPA\LEVODOPA [Suspect]
     Active Substance: CARBIDOPA\LEVODOPA
     Dosage: MD: 17.5 ML?CD: 2.0 ML/HR ? 16 HRS?ED: 0.5 ML/UNIT ? 0
     Route: 050
     Dates: start: 20190724, end: 20190729
  7. CARBIDOPA\LEVODOPA [Suspect]
     Active Substance: CARBIDOPA\LEVODOPA
     Dosage: MD: 15 ML?CD: 2.2 ML/HR ? 16 HRS
     Route: 050
     Dates: start: 20190729, end: 20200612
  8. CARBIDOPA\LEVODOPA [Suspect]
     Active Substance: CARBIDOPA\LEVODOPA
     Dosage: MD: 13 ML?CD: 2.2 ML/HR X 16 HRS?LAST ADMIN DATE WAS 2020
     Route: 050
     Dates: start: 20200612
  9. CELECOXIB [Concomitant]
     Active Substance: CELECOXIB
     Indication: Cervicobrachial syndrome
     Dates: start: 20220216, end: 20221209
  10. AMBROXOL HYDROCHLORIDE [Concomitant]
     Active Substance: AMBROXOL HYDROCHLORIDE
     Indication: Prophylaxis
     Dosage: 45 MILLIGRAM
     Dates: end: 20221209
  11. SERTRALINE [Concomitant]
     Active Substance: SERTRALINE HYDROCHLORIDE
     Indication: Depression
     Dosage: 50 MILLIGRAM
     Dates: start: 20221026, end: 20221209
  12. ROTIGOTINE [Concomitant]
     Active Substance: ROTIGOTINE
     Indication: Parkinson^s disease
     Dosage: 18 MILLIGRAM
     Dates: end: 20221209
  13. ROTIGOTINE [Concomitant]
     Active Substance: ROTIGOTINE
     Indication: Parkinson^s disease
     Route: 062
     Dates: end: 20190630
  14. ROTIGOTINE [Concomitant]
     Active Substance: ROTIGOTINE
     Indication: Parkinson^s disease
     Route: 062
     Dates: start: 20190701, end: 20190721
  15. ROTIGOTINE [Concomitant]
     Active Substance: ROTIGOTINE
     Indication: Parkinson^s disease
     Route: 062
     Dates: start: 20190722, end: 20190912
  16. ROTIGOTINE [Concomitant]
     Active Substance: ROTIGOTINE
     Indication: Parkinson^s disease
     Route: 062
     Dates: end: 20210525
  17. MAGNESIUM OXIDE [Concomitant]
     Active Substance: MAGNESIUM OXIDE
     Indication: Product used for unknown indication
     Dosage: 1000 MILLIGRAM
     Dates: end: 20221209
  18. MOSAPRIDE CITRATE [Concomitant]
     Active Substance: MOSAPRIDE CITRATE
     Indication: Product used for unknown indication
     Dosage: MOSAPRIDE CITRATE HYDRATE?10 MILLIGRAM
     Route: 050
     Dates: end: 20221209
  19. ZINC ACETATE [Concomitant]
     Active Substance: ZINC ACETATE
     Indication: Prophylaxis
     Dosage: ZINC ACETATE HYDRATE
     Route: 050
     Dates: start: 20190830, end: 20210525
  20. ZINC ACETATE [Concomitant]
     Active Substance: ZINC ACETATE
     Indication: Prophylaxis
     Dosage: 50 MG
     Route: 050
     Dates: end: 20221209
  21. BENFOTIAMINE;CYANOCOBALAMIN;PYRIDOXINE [Concomitant]
     Indication: Prophylaxis
     Route: 048
     Dates: start: 20190830, end: 20210525
  22. URAPIDIL [Concomitant]
     Active Substance: URAPIDIL
     Indication: Neurogenic bladder
     Route: 048
     Dates: start: 20191011, end: 20210525

REACTIONS (8)
  - Obstructive airways disorder [Fatal]
  - Parkinson^s disease [Unknown]
  - Enterocolitis viral [Recovering/Resolving]
  - Peritonitis [Recovered/Resolved]
  - Gastrooesophageal reflux disease [Recovering/Resolving]
  - Dyskinesia [Recovering/Resolving]
  - Dyskinesia [Recovering/Resolving]
  - Dyskinesia [Recovered/Resolved]

NARRATIVE: CASE EVENT DATE: 20190712
